FAERS Safety Report 5851530-7 (Version None)
Quarter: 2008Q3

REPORT INFORMATION
  Report Type: 
  Country: None (occurrence: None)
  Receive Date: 20080820
  Receipt Date: 20080811
  Transmission Date: 20090109
  Serious: Yes (Other)
  Sender: FDA-Public Use
  Company Number: JP-ELI_LILLY_AND_COMPANY-JP200808000004

PATIENT
  Age: 81 Year
  Sex: Female

DRUGS (11)
  1. EVISTA [Suspect]
     Dosage: 60 MG, DAILY (1/D)
     Route: 048
     Dates: start: 20050725
  2. NORVASC [Concomitant]
     Indication: HYPERTENSION
     Dosage: 5 MG, DAILY (1/D)
     Route: 048
     Dates: start: 20040720
  3. HIBON [Concomitant]
     Indication: HYPOVITAMINOSIS
     Dosage: 40 MG, DAILY (1/D)
     Route: 048
     Dates: start: 20040909
  4. CINAL [Concomitant]
     Indication: HYPOVITAMINOSIS
     Dosage: 400 MG, DAILY (1/D)
     Route: 048
     Dates: start: 20040909
  5. HYTHIOL [Concomitant]
     Indication: HYPOVITAMINOSIS
     Dosage: 160 MG, DAILY (1/D)
     Route: 048
     Dates: start: 20040909
  6. PYDOXAL [Concomitant]
     Indication: HYPOVITAMINOSIS
     Dosage: 20 MG, DAILY (1/D)
     Route: 048
     Dates: start: 20040909
  7. D ALFA [Concomitant]
     Indication: OSTEOPOROSIS
     Dosage: 1 UG, DAILY (1/D)
     Route: 048
     Dates: start: 20050228
  8. ASPARA-CA [Concomitant]
     Indication: OSTEOPOROSIS
     Dosage: 1 UG, DAILY (1/D)
     Route: 048
     Dates: start: 20050228
  9. MICARDIS [Concomitant]
     Indication: HYPERTENSION
     Dosage: 20 MG, DAILY (1/D)
     Route: 048
     Dates: start: 20050228
  10. LIPIDIL [Concomitant]
     Indication: HYPERLIPIDAEMIA
     Dosage: 200 MG, DAILY (1/D)
     Route: 048
     Dates: start: 20050228
  11. OMEPRAZOLE [Concomitant]
     Indication: GASTRITIS
     Dosage: 10 MG, DAILY (1/D)
     Route: 048
     Dates: start: 20050228

REACTIONS (1)
  - INTRAOCULAR PRESSURE INCREASED [None]
